FAERS Safety Report 7552851 (Version 2)
Quarter: 2013Q3

REPORT INFORMATION
  Report Type: Spontaneous
  Country: US (occurrence: US)
  Receive Date: 20100825
  Receipt Date: 20130906
  Transmission Date: 20140515
  Serious: Yes (Other)
  Sender: FDA-Public Use
  Company Number: US-RANBAXY-2010US-37446

PATIENT
  Age: 39 Year
  Sex: Male

DRUGS (1)
  1. PHENOBARBITAL [Suspect]
     Indication: CONVULSION
     Dosage: UNK
     Route: 065
     Dates: end: 200607

REACTIONS (1)
  - Hepatic adenoma [Unknown]
